FAERS Safety Report 12322229 (Version 3)
Quarter: 2016Q3

REPORT INFORMATION
  Report Type: Report from Study
  Country: JP (occurrence: JP)
  Receive Date: 20160502
  Receipt Date: 20160715
  Transmission Date: 20161109
  Serious: Yes (Other)
  Sender: FDA-Public Use
  Company Number: JP-009507513-1504JPN020679

PATIENT
  Age: 52 Year
  Sex: Male
  Weight: 85 kg

DRUGS (10)
  1. CYCLOSPORINE. [Suspect]
     Active Substance: CYCLOSPORINE
     Dosage: REDUCED TO 25% OF THE ORIGINAL DOSE, MAINTAIN A TROUGH LEVEL OF 100 TO 150 NG/ML
     Route: 065
  2. PEGINTRON [Suspect]
     Active Substance: PEGINTERFERON ALFA-2B
     Indication: HEPATITIS C
     Dosage: 1.5 MICROGRAM PER KILOGRAM1.5 MICROGRAM/KG(130 MICROGRAM), QW
     Route: 058
  3. REBETOL [Suspect]
     Active Substance: RIBAVIRIN
     Indication: HEPATITIS C
     Dosage: 500 MG, QD
     Route: 048
  4. TELAVIC [Suspect]
     Active Substance: TELAPREVIR
     Indication: HEPATITIS C
     Dosage: 500 MG, TID, AFTER EACH MEAL, FOR 12 WEEKS
     Route: 048
  5. MYCOPHENOLATE MOFETIL. [Concomitant]
     Active Substance: MYCOPHENOLATE MOFETIL
     Indication: IMMUNOSUPPRESSION
     Dosage: 1000 MG, UNK
     Route: 065
  6. REBETOL [Suspect]
     Active Substance: RIBAVIRIN
     Dosage: 300 MG, QD
     Route: 048
  7. REBETOL [Suspect]
     Active Substance: RIBAVIRIN
     Dosage: 100 MG, QD
     Route: 048
  8. CYCLOSPORINE. [Suspect]
     Active Substance: CYCLOSPORINE
     Indication: IMMUNOSUPPRESSION
     Dosage: UNK
     Route: 065
  9. MYCOPHENOLATE MOFETIL. [Concomitant]
     Active Substance: MYCOPHENOLATE MOFETIL
     Dosage: DAILY 2000 MG
     Route: 065
  10. CYCLOSPORINE. [Suspect]
     Active Substance: CYCLOSPORINE
     Dosage: INCREASED TO 200 TO 250 NG/ML
     Route: 065

REACTIONS (8)
  - Rash [Unknown]
  - Autoimmune hepatitis [Recovered/Resolved]
  - Drug interaction [Recovered/Resolved]
  - Incorrect dose administered [Unknown]
  - Transplant rejection [Recovered/Resolved]
  - Anaemia [Recovering/Resolving]
  - Renal impairment [Recovering/Resolving]
  - Off label use [Unknown]
